FAERS Safety Report 9197218 (Version 1)
Quarter: 2013Q1

REPORT INFORMATION
  Report Type: Spontaneous
  Country: US (occurrence: None)
  Receive Date: 20120709
  Receipt Date: 20120709
  Transmission Date: 20140127
  Serious: Yes (Other)
  Sender: FDA-Public Use
  Company Number: PHEH2011US05383

PATIENT
  Age: 60 Year
  Sex: Male
  Weight: 80.3 kg

DRUGS (3)
  1. GLEEVEC [Suspect]
     Indication: CHRONIC MYELOID LEUKAEMIA
     Route: 048
     Dates: start: 20110318, end: 20110726
  2. ALLOPURINOL (ALLOPURINOPL) [Concomitant]
  3. NEVANAC (NEPAFENAC) [Concomitant]

REACTIONS (5)
  - Thrombocytopenia [None]
  - Neutropenia [None]
  - Red blood cell count abnormal [None]
  - Platelet count decreased [None]
  - White blood cell count decreased [None]
